FAERS Safety Report 13959693 (Version 1)
Quarter: 2017Q3

REPORT INFORMATION
  Report Type: Spontaneous
  Country: CA (occurrence: CA)
  Receive Date: 20170912
  Receipt Date: 20170912
  Transmission Date: 20171128
  Serious: Yes (Hospitalization, Other)
  Sender: FDA-Public Use
  Company Number: CA-APOTEX-2017AP018315

PATIENT
  Sex: Male

DRUGS (3)
  1. APO-MYCOPHENOLATE [Suspect]
     Active Substance: MYCOPHENOLIC ACID
     Indication: INFERTILITY MALE
     Dosage: UNK, QD
     Route: 048
  2. APO-DIGOXIN [Suspect]
     Active Substance: DIGOXIN
     Indication: INFERTILITY MALE
     Route: 048
  3. PHENETHYLAMINE [Suspect]
     Active Substance: PHENETHYLAMINE
     Indication: INFERTILITY MALE
     Route: 048

REACTIONS (5)
  - Atrioventricular block complete [Unknown]
  - Toxicity to various agents [Unknown]
  - Upper respiratory tract infection [Unknown]
  - Viral myocarditis [Unknown]
  - Cardiac failure [Unknown]
